FAERS Safety Report 18344775 (Version 2)
Quarter: 2020Q4

REPORT INFORMATION
  Report Type: Spontaneous
  Country: US (occurrence: US)
  Receive Date: 20201005
  Receipt Date: 20201012
  Transmission Date: 20210114
  Serious: Yes (Life-Threatening, Hospitalization, Other)
  Sender: FDA-Public Use
  Company Number: US-MYLANLABS-2020M1084098

PATIENT
  Age: 32 Year
  Sex: Male

DRUGS (3)
  1. AZATHIOPRINE. [Suspect]
     Active Substance: AZATHIOPRINE
     Indication: POLYCHONDRITIS
     Dosage: UNK
     Route: 065
  2. PREDNISONE. [Suspect]
     Active Substance: PREDNISONE
     Indication: POLYCHONDRITIS
     Dosage: UNK
     Route: 065
  3. METHOTREXATE. [Suspect]
     Active Substance: METHOTREXATE
     Indication: POLYCHONDRITIS
     Dosage: UNK
     Route: 065

REACTIONS (9)
  - Rebound effect [Recovered/Resolved]
  - Coronary ostial stenosis [Recovered/Resolved]
  - Pulseless electrical activity [Recovered/Resolved]
  - Ventricular dysfunction [Recovered/Resolved]
  - Pancreatitis [Unknown]
  - Aortitis [Recovered/Resolved]
  - Aortic valve incompetence [Recovered/Resolved]
  - Polychondritis [Recovered/Resolved]
  - Chest pain [Recovered/Resolved]
